FAERS Safety Report 4340912-0 (Version None)
Quarter: 2004Q2

REPORT INFORMATION
  Report Type: 
  Country: None (occurrence: None)
  Receive Date: 20040413
  Receipt Date: 20040401
  Transmission Date: 20050107
  Serious: Yes (Other)
  Sender: FDA-Public Use
  Company Number: 2004207284DE

PATIENT
  Age: 61 Year
  Sex: Male
  Weight: 63 kg

DRUGS (4)
  1. GENOTROPIN [Suspect]
     Indication: HYPOPITUITARISM
     Dosage: 0.5 + 1.5 + 2 IU, QD, SUBCUTANEOUS
     Route: 058
  2. THYROXIN (LEVOTHYROXINE SODIUM) [Concomitant]
  3. TESTOSTERONE ENANTATE (TESTOSTERONENANTATE) [Concomitant]
  4. CORTISONE ACETATE [Concomitant]

REACTIONS (10)
  - ACROMEGALY [None]
  - BRADYCARDIA [None]
  - DEPRESSION [None]
  - DIZZINESS [None]
  - DRUG WITHDRAWAL SYNDROME [None]
  - EMPTY SELLA SYNDROME [None]
  - FATIGUE [None]
  - HEADACHE [None]
  - HYPOTENSION [None]
  - SLEEP APNOEA SYNDROME [None]
